FAERS Safety Report 8211549-8 (Version None)
Quarter: 2012Q1

REPORT INFORMATION
  Report Type: 
  Country: None (occurrence: None)
  Receive Date: 20120315
  Receipt Date: 20120306
  Transmission Date: 20120608
  Serious: Yes (Hospitalization)
  Sender: FDA-Public Use
  Company Number: US-ASTELLAS-2012US000319

PATIENT
  Sex: Female
  Weight: 70 kg

DRUGS (38)
  1. ERLOTINIB HYDROCHLORIDE [Suspect]
     Indication: NON-SMALL CELL LUNG CANCER METASTATIC
     Dosage: 150 MG, UID/QD
     Route: 048
     Dates: start: 20111202, end: 20120106
  2. DASATINIB [Suspect]
     Dosage: 50 MG, UID/QD
     Route: 048
     Dates: start: 20111202, end: 20120106
  3. LOMOTIL [Concomitant]
     Indication: DIARRHOEA
     Dosage: UNK, 1-2 TABLETS Q 4-6 HRS
     Route: 048
  4. EFFEXOR XR [Concomitant]
     Indication: DEPRESSION
     Dosage: 150 MG, UID/QD
     Route: 048
  5. DIOVAN [Concomitant]
     Indication: HYPERTENSION
     Dosage: 320 MG, UID/QD
     Route: 048
  6. ASPIRIN [Concomitant]
     Indication: CARDIOVASCULAR EVENT PROPHYLAXIS
     Dosage: 81 MG, QHS
     Route: 048
  7. ONDANSETRON HCL [Concomitant]
     Indication: NAUSEA
     Dosage: 6 MG, TID
     Route: 048
  8. ONDANSETRON HCL [Concomitant]
     Indication: VOMITING
  9. REGLAN [Concomitant]
     Indication: NAUSEA
     Dosage: 5 MG, BID
     Route: 048
  10. REGLAN [Concomitant]
     Indication: VOMITING
  11. XALATAN [Concomitant]
     Indication: GLAUCOMA
     Dosage: 1 DF, QHS, EACH EYE
     Route: 031
  12. PHENERGAN [Concomitant]
     Indication: VOMITING
  13. ERLOTINIB HYDROCHLORIDE [Suspect]
     Dosage: 150 MG, UID/QD
     Route: 048
     Dates: start: 20120120, end: 20120304
  14. DASATINIB [Suspect]
     Dosage: 20 MG, UID/QD
     Route: 048
     Dates: start: 20111202, end: 20120304
  15. SIMVASTATIN [Concomitant]
     Indication: BLOOD CHOLESTEROL
     Dosage: 20 MG, QHS
     Route: 048
  16. NORVASC [Concomitant]
     Indication: HYPERTENSION
     Dosage: 5 MG, UID/QD
     Route: 048
  17. LOMOTIL [Concomitant]
     Dosage: 2 DF, Q6 HOURS
     Route: 048
  18. TOPROL-XL [Concomitant]
     Indication: HYPERTENSION
     Dosage: 100 MG, Q12 HOURS
     Route: 048
  19. CALCIUM [Concomitant]
     Indication: SUPPLEMENTATION THERAPY
     Dosage: 1 DF, UID/QD
     Route: 048
  20. MARINOL [Concomitant]
     Indication: NAUSEA
     Dosage: 2.5 MG, BID
     Route: 048
  21. PHENERGAN [Concomitant]
     Indication: NAUSEA
     Dosage: 75 MG, Q8 HOURS PRN
     Route: 065
  22. SCOPOLAMINE [Concomitant]
     Indication: NAUSEA
     Dosage: 1 DF, Q72HRS
     Route: 061
  23. TYLENOL [Concomitant]
     Indication: PAIN
     Dosage: 500 MG, PRN
     Route: 048
  24. HYDROCHLOROTHIAZIDE [Concomitant]
     Indication: HYPERTENSION
     Dosage: 25 MG, UID/QD
     Route: 048
  25. CALCIUM +D [Concomitant]
     Indication: PRODUCT USED FOR UNKNOWN INDICATION
     Dosage: 1 UNK, UID/QD
     Route: 065
  26. FISH OIL [Concomitant]
     Indication: SUPPLEMENTATION THERAPY
     Dosage: 1000 MG, QHS
     Route: 048
  27. SCOPOLAMINE [Concomitant]
     Indication: VOMITING
  28. DASATINIB [Suspect]
     Dosage: 50 MG, UID/QD
     Route: 048
  29. ZETIA [Concomitant]
     Indication: PRODUCT USED FOR UNKNOWN INDICATION
     Dosage: 10 MG, QHS
     Route: 065
  30. TIMOLOL MALEATE [Concomitant]
     Indication: GLAUCOMA
     Dosage: 1 DF, QHS, EACH EYE
     Route: 031
  31. CLONAZEPAM [Concomitant]
     Indication: ANXIETY
     Dosage: 1 MG, QHS PRN
     Route: 048
  32. DASATINIB [Suspect]
     Dosage: 50 MG, UID/QD
     Route: 048
     Dates: start: 20120120, end: 20120304
  33. MARINOL [Concomitant]
     Indication: VOMITING
  34. TYLENOL [Concomitant]
     Indication: HEADACHE
  35. DASATINIB [Suspect]
     Indication: NON-SMALL CELL LUNG CANCER METASTATIC
     Dosage: 20 MG, UID/QD
     Route: 048
     Dates: start: 20111202, end: 20120106
  36. PREVACID [Concomitant]
     Indication: PRODUCT USED FOR UNKNOWN INDICATION
     Dosage: 30 MG, QHS
  37. EVISTA [Concomitant]
     Indication: OSTEOPOROSIS
     Dosage: 60 MG, UID/QD
     Route: 048
  38. COLESTIPOL HYDROCHLORIDE [Concomitant]
     Indication: PRODUCT USED FOR UNKNOWN INDICATION
     Dosage: 1 DF, BID
     Route: 048

REACTIONS (8)
  - HYPOKALAEMIA [None]
  - ANXIETY [None]
  - ANAEMIA [None]
  - DIARRHOEA [None]
  - OEDEMA PERIPHERAL [None]
  - MALIGNANT PLEURAL EFFUSION [None]
  - DYSPNOEA [None]
  - ACUTE RESPIRATORY FAILURE [None]
